FAERS Safety Report 8930474 (Version 4)
Quarter: 2013Q4

REPORT INFORMATION
  Report Type: Spontaneous
  Country: US (occurrence: US)
  Receive Date: 20121128
  Receipt Date: 20131125
  Transmission Date: 20140711
  Serious: Yes (Hospitalization, Disabling, Other)
  Sender: FDA-Public Use
  Company Number: US-009507513-1211USA010220

PATIENT
  Sex: Female
  Weight: 79.37 kg

DRUGS (2)
  1. NUVARING [Suspect]
     Indication: CONTRACEPTION
     Dosage: UNK
     Route: 067
     Dates: start: 2005, end: 2005
  2. NUVARING [Suspect]
     Dosage: UNK
     Route: 067
     Dates: start: 20041111, end: 20061229

REACTIONS (9)
  - Hodgkin^s disease [Unknown]
  - Pulmonary embolism [Unknown]
  - Menstruation irregular [Unknown]
  - Menorrhagia [Unknown]
  - Headache [Unknown]
  - Nausea [Unknown]
  - Photophobia [Unknown]
  - Influenza [Unknown]
  - Neoplasm malignant [Unknown]
